FAERS Safety Report 14781820 (Version 1)
Quarter: 2018Q2

REPORT INFORMATION
  Report Type: Spontaneous
  Country: DE (occurrence: DE)
  Receive Date: 20180420
  Receipt Date: 20180420
  Transmission Date: 20180711
  Serious: Yes (Other)
  Sender: FDA-Public Use
  Company Number: DE-CONCORDIA PHARMACEUTICALS INC.-E2B_00009773

PATIENT
  Age: 51 Year
  Sex: Female
  Weight: 75 kg

DRUGS (10)
  1. PREDNISOLONE. [Suspect]
     Active Substance: PREDNISOLONE
     Indication: PERIARTHRITIS
     Dates: start: 20180117, end: 20180123
  2. PREDNISOLONE. [Suspect]
     Active Substance: PREDNISOLONE
     Dates: start: 20180103, end: 20180109
  3. ARCOXIA [Concomitant]
     Active Substance: ETORICOXIB
     Dates: start: 201512
  4. L-THYROXIN HENNING [Concomitant]
     Active Substance: LEVOTHYROXINE SODIUM
     Dates: start: 1972
  5. ASPIRIN PROTECT [Concomitant]
     Active Substance: ASPIRIN
     Dates: start: 201604
  6. PREDNISOLONE. [Suspect]
     Active Substance: PREDNISOLONE
     Dates: start: 20180110, end: 20180116
  7. MIRTAZAPIN BETA 15 MG [Concomitant]
     Indication: DEPRESSION
     Dates: start: 201606
  8. PREDNISOLONE. [Suspect]
     Active Substance: PREDNISOLONE
     Dates: start: 20171227, end: 20180102
  9. PREDNISOLONE. [Suspect]
     Active Substance: PREDNISOLONE
     Dates: start: 20180124
  10. PANTOPRAZOL DURA 20 MG [Concomitant]
     Dates: start: 201512

REACTIONS (10)
  - Irritability [Recovered/Resolved]
  - Palpitations [Recovered/Resolved]
  - Sleep disorder [Recovered/Resolved]
  - Heart rate increased [Not Recovered/Not Resolved]
  - Infection [Recovered/Resolved]
  - Apathy [Recovered/Resolved]
  - Oral herpes [Recovered/Resolved]
  - Arrhythmia [Recovered/Resolved]
  - Weight increased [Recovered/Resolved]
  - Laceration [Recovered/Resolved]

NARRATIVE: CASE EVENT DATE: 201801
